FAERS Safety Report 5656182-7 (Version None)
Quarter: 2008Q1

REPORT INFORMATION
  Report Type: 
  Country: None (occurrence: None)
  Receive Date: 20080305
  Receipt Date: 20080219
  Transmission Date: 20080703
  Serious: Yes (Death)
  Sender: FDA-Public Use
  Company Number: S08-FRA-00683-02

PATIENT

DRUGS (6)
  1. PROPESS (DINOPROSTONE) [Suspect]
     Dosage: 10 MG ONCE TRANSLACENTAL
     Route: 064
     Dates: start: 20071206, end: 20071206
  2. PROPESS (DINOPROSTONE) [Suspect]
     Dosage: 10 MG ONCE TRANSPLACENTAL
     Route: 064
     Dates: start: 20071206, end: 20071207
  3. SPASFON LYOC (PHILOROGLUCINOL) [Concomitant]
  4. NUBAIN [Concomitant]
  5. MAG 2 (MAGNESIUM PIDOLATE) [Concomitant]
  6. ATARAX [Concomitant]

REACTIONS (4)
  - CAESAREAN SECTION [None]
  - DRUG EXPOSURE DURING PREGNANCY [None]
  - FOETAL DISTRESS SYNDROME [None]
  - PREMATURE SEPARATION OF PLACENTA [None]
